FAERS Safety Report 9848409 (Version 1)
Quarter: 2014Q1

REPORT INFORMATION
  Report Type: Spontaneous
  Country: US (occurrence: None)
  Receive Date: 20140122
  Receipt Date: 20140122
  Transmission Date: 20141002
  Serious: Yes (Death)
  Sender: FDA-Public Use
  Company Number: B0959150A

PATIENT
  Age: 32 Year
  Sex: Male

DRUGS (5)
  1. BUPROPION HYDROCHLORIDE UNSPECIFIED TABLET (GENERIC) (PUPROPION HYDROCHLORIDE) [Suspect]
     Route: 048
  2. DIPHENHYDRAMINE (FORMULATION UNKNOWN) (GENERIC) (DIPHENHYDRAMINE) [Suspect]
     Route: 048
  3. DOXYLAMINE (FORMULATION UNKNOWN) (DOXYLAMINE) [Suspect]
     Route: 048
  4. DEXTROMETHORPHAN HBR (FORMULATION UNKNOWN) (DEXTROMETHORPHAN) [Suspect]
     Route: 048
  5. CITALOPRAM (FORMULATION UNKNOWN) (CITALOPRAM) [Suspect]
     Route: 048

REACTIONS (1)
  - Completed suicide [None]
